FAERS Safety Report 6883565-X (Version None)
Quarter: 2010Q3

REPORT INFORMATION
  Report Type: 
  Country: None (occurrence: None)
  Receive Date: 20100729
  Receipt Date: 20100722
  Transmission Date: 20110219
  Serious: Yes (Other)
  Sender: FDA-Public Use
  Company Number: US-SANOFI-AVENTIS-2010SA043524

PATIENT
  Age: 64 Year
  Sex: Male

DRUGS (4)
  1. LANTUS [Suspect]
     Indication: DIABETES MELLITUS
     Dosage: DOSE:40 UNIT(S)
     Route: 058
     Dates: start: 20100120, end: 20100120
  2. LANTUS [Suspect]
     Route: 058
     Dates: start: 20100701
  3. SOLOSTAR [Suspect]
     Indication: DIABETES MELLITUS
     Dates: start: 20100120, end: 20100120
  4. SOLOSTAR [Suspect]
     Dates: start: 20100701

REACTIONS (1)
  - RETINAL TEAR [None]
